FAERS Safety Report 7014561-X (Version None)
Quarter: 2010Q3

REPORT INFORMATION
  Report Type: 
  Country: None (occurrence: None)
  Receive Date: 20100927
  Receipt Date: 20100914
  Transmission Date: 20110219
  Serious: Yes (Hospitalization)
  Sender: FDA-Public Use
  Company Number: JP-NOVOPROD-313585

PATIENT
  Age: 70 Year
  Sex: Male

DRUGS (5)
  1. LEVEMIR [Suspect]
     Indication: TYPE 2 DIABETES MELLITUS
     Dosage: 6 U, QD
     Dates: start: 20090610, end: 20090624
  2. NOVOLIN R [Suspect]
     Indication: TYPE 2 DIABETES MELLITUS
  3. HUMALOG MIX 50 [Concomitant]
     Indication: DIABETES MELLITUS
     Dosage: 24U/SC
  4. HUMALOG [Concomitant]
     Indication: DIABETES MELLITUS
     Dosage: 30U/SC
  5. HUMACART N [Concomitant]

REACTIONS (3)
  - ANTI-INSULIN ANTIBODY [None]
  - HYPERGLYCAEMIA [None]
  - HYPOGLYCAEMIA [None]
